FAERS Safety Report 9697048 (Version 1)
Quarter: 2013Q4

REPORT INFORMATION
  Report Type: Spontaneous
  Country: CA (occurrence: CA)
  Receive Date: 20131120
  Receipt Date: 20131120
  Transmission Date: 20140711
  Serious: Yes (Disabling)
  Sender: FDA-Public Use
  Company Number: CA-AMGEN-CANSP2013080672

PATIENT
  Age: 62 Year
  Sex: Female

DRUGS (3)
  1. XGEVA [Suspect]
     Indication: PRODUCT USED FOR UNKNOWN INDICATION
     Dosage: 1 DF, UNK
     Route: 058
  2. LAXATIVE [Concomitant]
  3. SYNTHROID [Concomitant]

REACTIONS (2)
  - Tumour flare [Not Recovered/Not Resolved]
  - Pain in extremity [Not Recovered/Not Resolved]
